FAERS Safety Report 5333127-0 (Version None)
Quarter: 2007Q2

REPORT INFORMATION
  Report Type: 
  Country: None (occurrence: None)
  Receive Date: 20070521
  Receipt Date: 20070521
  Transmission Date: 20071010
  Serious: Yes (Hospitalization)
  Sender: FDA-Public Use
  Company Number: None

PATIENT
  Age: 41 Year
  Sex: Male

DRUGS (1)
  1. DIVALPROEX SODIUM [Suspect]
     Indication: MANIA
     Dosage: 500MG HS PO
     Route: 048
     Dates: start: 20070307, end: 20070312

REACTIONS (2)
  - AMNESIA [None]
  - CONFUSIONAL STATE [None]
